FAERS Safety Report 5521613-X (Version None)
Quarter: 2007Q4

REPORT INFORMATION
  Report Type: 
  Country: None (occurrence: None)
  Receive Date: 20071115
  Receipt Date: 20071030
  Transmission Date: 20080405
  Serious: Yes (Other)
  Sender: FDA-Public Use
  Company Number: 430006L07ITA

PATIENT
  Sex: Female

DRUGS (14)
  1. NOVANTRONE [Suspect]
     Indication: MULTIPLE SCLEROSIS
     Dosage: 20 MG, ONCE, INTRAVENOUS (NOT OTHERWISE SPECIFIED)
     Route: 042
     Dates: start: 20041129, end: 20041129
  2. NOVANTRONE [Suspect]
     Indication: MULTIPLE SCLEROSIS
     Dosage: 20 MG, ONCE, INTRAVENOUS (NOT OTHERWISE SPECIFIED)
     Route: 042
     Dates: start: 20050301, end: 20050301
  3. NOVANTRONE [Suspect]
     Indication: MULTIPLE SCLEROSIS
     Dosage: 20 MG, ONCE, INTRAVENOUS (NOT OTHERWISE SPECIFIED)
     Route: 042
     Dates: start: 20050606, end: 20050606
  4. NOVANTRONE [Suspect]
     Indication: MULTIPLE SCLEROSIS
     Dosage: 20 MG, ONCE, INTRAVENOUS (NOT OTHERWISE SPECIFIED)
     Route: 042
     Dates: start: 20050906, end: 20050906
  5. DEXAMETHASONE [Suspect]
     Indication: MULTIPLE SCLEROSIS
     Dosage: 4 MG, ONCE, TRANSPLACENTAL; 4 MG, ONCE
     Route: 064
     Dates: start: 20041129, end: 20041129
  6. DEXAMETHASONE [Suspect]
     Indication: MULTIPLE SCLEROSIS
     Dosage: 4 MG, ONCE, TRANSPLACENTAL; 4 MG, ONCE
     Route: 064
     Dates: start: 20050301, end: 20050301
  7. DEXAMETHASONE [Suspect]
     Indication: MULTIPLE SCLEROSIS
     Dosage: 4 MG, ONCE, TRANSPLACENTAL; 4 MG, ONCE
     Route: 064
     Dates: start: 20050606, end: 20050606
  8. DEXAMETHASONE [Suspect]
     Indication: MULTIPLE SCLEROSIS
     Dosage: 4 MG, ONCE, TRANSPLACENTAL; 4 MG, ONCE
     Route: 064
     Dates: start: 20050906, end: 20050906
  9. TROPISETRON (TROPISETRON) [Suspect]
     Indication: MULTIPLE SCLEROSIS
     Dosage: 5 MG, ONCE, TRANSPLACENTAL; 5 MG, ONCE
     Route: 064
     Dates: start: 20041129, end: 20041129
  10. TROPISETRON (TROPISETRON) [Suspect]
     Indication: MULTIPLE SCLEROSIS
     Dosage: 5 MG, ONCE, TRANSPLACENTAL; 5 MG, ONCE
     Route: 064
     Dates: start: 20050301, end: 20050301
  11. TROPISETRON (TROPISETRON) [Suspect]
     Indication: MULTIPLE SCLEROSIS
     Dosage: 5 MG, ONCE, TRANSPLACENTAL; 5 MG, ONCE
     Route: 064
     Dates: start: 20050606, end: 20050606
  12. TROPISETRON (TROPISETRON) [Suspect]
     Indication: MULTIPLE SCLEROSIS
     Dosage: 5 MG, ONCE, TRANSPLACENTAL; 5 MG, ONCE
     Route: 064
     Dates: start: 20050906, end: 20050906
  13. BROMAZEPAM (BROMAZEPAM) [Concomitant]
  14. CITALOPRAM HYDROBROMIDE [Concomitant]

REACTIONS (5)
  - CAESAREAN SECTION [None]
  - DRUG EXPOSURE DURING PREGNANCY [None]
  - FOETAL GROWTH RETARDATION [None]
  - OLIGOHYDRAMNIOS [None]
  - SMALL FOR DATES BABY [None]
